FAERS Safety Report 4933025-8 (Version None)
Quarter: 2006Q1

REPORT INFORMATION
  Report Type: 
  Country: None (occurrence: None)
  Receive Date: 20060306
  Receipt Date: 20060215
  Transmission Date: 20060701
  Serious: Yes (Other)
  Sender: FDA-Public Use
  Company Number: PHEH2006US02232

PATIENT
  Age: 12 Year
  Sex: Female
  Weight: 26.303 kg

DRUGS (1)
  1. EXJADE [Suspect]
     Indication: BLOOD IRON INCREASED
     Dosage: 20 UNK, QD
     Route: 048
     Dates: start: 20060130, end: 20060203

REACTIONS (3)
  - SWELLING FACE [None]
  - THROAT IRRITATION [None]
  - URTICARIA GENERALISED [None]
